FAERS Safety Report 6173625-3 (Version None)
Quarter: 2009Q2

REPORT INFORMATION
  Report Type: 
  Country: None (occurrence: None)
  Receive Date: 20090430
  Receipt Date: 20090421
  Transmission Date: 20091009
  Serious: Yes (Hospitalization)
  Sender: FDA-Public Use
  Company Number: TR-WATSON-2009-02784

PATIENT
  Age: 66 Year
  Sex: Male

DRUGS (7)
  1. IRINOTECAN HYDROCHLORIDE [Suspect]
     Indication: RECTAL CANCER
     Dosage: 180 MG/M2  (DAYS 1 + 15 OF 28)
     Route: 042
     Dates: start: 20080101
  2. FLUOROURACIL [Suspect]
     Indication: RECTAL CANCER
     Dosage: 400 MG/M2, BOLUS
     Route: 042
     Dates: start: 20080101
  3. FLUOROURACIL [Suspect]
     Dosage: 600 MG/M2, CONT IV, DAYS 1,2 AND 15,16 OF 28
     Route: 042
     Dates: start: 20080101
  4. RALTITREXED [Suspect]
     Indication: RECTAL CANCER
     Dosage: 3 MG/M2, DAY 1 OF 21
     Dates: start: 20080101
  5. CAPECITABINE [Suspect]
     Indication: RECTAL CANCER
     Dosage: 2500 MG/M2, DAYS 1-14 OF 21
     Dates: start: 20080101
  6. OXALIPLATIN [Suspect]
     Indication: RECTAL CANCER
     Dosage: 130 MG/M2, DAY 1 OF 21
     Dates: start: 20080101
  7. LEUCOVORIN CALCIUM [Concomitant]
     Indication: DRUG TOXICITY PROPHYLAXIS

REACTIONS (1)
  - CHRONIC MYELOID LEUKAEMIA [None]
